FAERS Safety Report 8573933-2 (Version None)
Quarter: 2012Q2

REPORT INFORMATION
  Report Type: 
  Country: None (occurrence: None)
  Receive Date: 20120423
  Receipt Date: 20090916
  Transmission Date: 20120825
  Serious: Yes (Other)
  Sender: FDA-Public Use
  Company Number: PHEH2009US11561

PATIENT
  Age: 82 Year
  Sex: Male

DRUGS (1)
  1. EXJADE [Suspect]
     Dosage: 1000 MG, TWICE DAILY, ORAL
     Route: 048
     Dates: start: 20090520, end: 20090811

REACTIONS (3)
  - DRUG DOSE OMISSION [None]
  - NAUSEA [None]
  - DIARRHOEA [None]
